FAERS Safety Report 13441139 (Version 9)
Quarter: 2018Q1

REPORT INFORMATION
  Report Type: Spontaneous
  Country: US (occurrence: US)
  Receive Date: 20170413
  Receipt Date: 20180216
  Transmission Date: 20180508
  Serious: Yes (Congenital Anomaly, Other)
  Sender: FDA-Public Use
  Company Number: PHEH2017US010671

PATIENT
  Sex: Male

DRUGS (1)
  1. ZOFRAN [Suspect]
     Active Substance: ONDANSETRON HYDROCHLORIDE
     Indication: FOETAL EXPOSURE DURING PREGNANCY
     Dosage: MOTHER^S DOSE: 08 MG, UNK
     Route: 064

REACTIONS (55)
  - Deafness [Unknown]
  - Cellulitis [Unknown]
  - Foetal growth restriction [Unknown]
  - Developmental delay [Unknown]
  - Acute stress disorder [Unknown]
  - Cleft lip [Unknown]
  - Otorrhoea [Unknown]
  - Cardiac murmur [Unknown]
  - Sleep apnoea syndrome [Unknown]
  - Oral disorder [Unknown]
  - Atrial septal defect [Unknown]
  - Respiratory tract infection [Unknown]
  - Middle ear effusion [Unknown]
  - Respiratory disorder [Unknown]
  - Enuresis [Unknown]
  - Wound [Unknown]
  - Pharyngitis streptococcal [Unknown]
  - Upper airway obstruction [Unknown]
  - Foetal exposure during pregnancy [Unknown]
  - Urinary incontinence [Unknown]
  - Skin irritation [Unknown]
  - Diarrhoea [Unknown]
  - Talipes [Unknown]
  - Velopharyngeal incompetence [Unknown]
  - Urinary tract obstruction [Unknown]
  - Pericardial effusion [Unknown]
  - Injury [Unknown]
  - Gait disturbance [Unknown]
  - Microcephaly [Unknown]
  - Eustachian tube dysfunction [Unknown]
  - Nose deformity [Unknown]
  - Ear pain [Unknown]
  - Dyspnoea [Unknown]
  - Tourette^s disorder [Unknown]
  - Tympanic membrane perforation [Unknown]
  - Infantile apnoea [Unknown]
  - Hypoxia [Unknown]
  - Otitis media [Unknown]
  - Cerumen impaction [Unknown]
  - Upper respiratory tract infection [Unknown]
  - Cough [Unknown]
  - Rash [Unknown]
  - Cleft palate [Unknown]
  - Congenital pharyngeal anomaly [Unknown]
  - Phimosis [Unknown]
  - Tibial torsion [Unknown]
  - Multiple congenital abnormalities [Unknown]
  - Premature baby [Unknown]
  - Small for dates baby [Unknown]
  - Abdominal pain [Unknown]
  - Speech disorder [Unknown]
  - Coordination abnormal [Unknown]
  - Lymphadenopathy [Unknown]
  - Hypopnoea [Unknown]
  - Hiccups [Unknown]

NARRATIVE: CASE EVENT DATE: 20050820
